FAERS Safety Report 5655719-1 (Version None)
Quarter: 2008Q1

REPORT INFORMATION
  Report Type: 
  Country: None (occurrence: None)
  Receive Date: 20080307
  Receipt Date: 20080226
  Transmission Date: 20080703
  Serious: Yes (Death, Other)
  Sender: FDA-Public Use
  Company Number: IE-PFIZER INC-2007025948

PATIENT
  Sex: Female

DRUGS (6)
  1. CHANTIX [Suspect]
     Indication: SMOKING CESSATION THERAPY
     Route: 048
  2. ACETAMINOPHEN W/ CODEINE [Concomitant]
  3. ALL OTHER THERAPEUTIC PRODUCTS [Concomitant]
  4. SERETIDE [Concomitant]
     Route: 055
  5. VENTOLIN [Concomitant]
     Route: 055
  6. SPIRIVA [Concomitant]
     Route: 055

REACTIONS (6)
  - ABDOMINAL PAIN UPPER [None]
  - ARRHYTHMIA [None]
  - HYPERTENSION [None]
  - HYPERTROPHY [None]
  - NAUSEA [None]
  - SYNCOPE [None]
